FAERS Safety Report 7029096-8 (Version None)
Quarter: 2010Q4

REPORT INFORMATION
  Report Type: 
  Country: None (occurrence: None)
  Receive Date: 20101005
  Receipt Date: 20100929
  Transmission Date: 20110411
  Serious: Yes (Hospitalization)
  Sender: FDA-Public Use
  Company Number: B0677653A

PATIENT
  Sex: Female

DRUGS (16)
  1. NEODUPLAMOX [Suspect]
     Indication: INFLUENZA
     Dosage: 2G PER DAY
     Route: 048
     Dates: start: 20100820, end: 20100826
  2. FLUIBRON [Suspect]
     Indication: INFLUENZA
     Dosage: 2ML PER DAY
     Route: 055
     Dates: start: 20100820, end: 20100826
  3. PRONTINAL [Suspect]
     Indication: INFLUENZA
     Dosage: 2ML PER DAY
     Route: 055
     Dates: start: 20100820, end: 20100826
  4. BRONCOVALEAS [Suspect]
     Indication: INFLUENZA
     Dosage: 10DROP PER DAY
     Route: 055
     Dates: start: 20100820, end: 20100826
  5. LEVOTUSS [Suspect]
     Indication: INFLUENZA
     Route: 048
     Dates: start: 20100820, end: 20100826
  6. PANTOPAN [Suspect]
     Indication: PRODUCT USED FOR UNKNOWN INDICATION
     Route: 065
  7. DELTACORTENE [Suspect]
     Indication: PRODUCT USED FOR UNKNOWN INDICATION
     Route: 065
  8. LASIX [Suspect]
     Indication: PRODUCT USED FOR UNKNOWN INDICATION
     Route: 065
  9. ALLOPURINOL [Suspect]
     Indication: PRODUCT USED FOR UNKNOWN INDICATION
     Route: 065
  10. CARDIOASPIRIN [Suspect]
     Indication: PRODUCT USED FOR UNKNOWN INDICATION
     Route: 065
  11. ALDACTONE [Suspect]
     Indication: PRODUCT USED FOR UNKNOWN INDICATION
     Route: 065
  12. BISOPROLOL [Suspect]
     Indication: PRODUCT USED FOR UNKNOWN INDICATION
     Route: 065
  13. COUMADIN [Suspect]
     Indication: PRODUCT USED FOR UNKNOWN INDICATION
     Route: 065
  14. QUARK [Suspect]
     Indication: PRODUCT USED FOR UNKNOWN INDICATION
     Route: 065
  15. HUMALOG [Suspect]
     Indication: PRODUCT USED FOR UNKNOWN INDICATION
     Route: 065
  16. LANTUS [Suspect]
     Indication: PRODUCT USED FOR UNKNOWN INDICATION
     Route: 065

REACTIONS (5)
  - BURNING SENSATION [None]
  - ERYTHEMA [None]
  - FACE OEDEMA [None]
  - PRURITUS [None]
  - RASH PUSTULAR [None]
